FAERS Safety Report 5356034-6 (Version None)
Quarter: 2007Q2

REPORT INFORMATION
  Report Type: 
  Country: None (occurrence: None)
  Receive Date: 20070613
  Receipt Date: 20070604
  Transmission Date: 20071010
  Serious: Yes (Hospitalization)
  Sender: FDA-Public Use
  Company Number: DE-GENENTECH-242023

PATIENT
  Sex: Male

DRUGS (4)
  1. RAPTIVA [Suspect]
     Indication: PSORIASIS
     Dosage: UNK, UNK
     Route: 058
     Dates: start: 20070208
  2. ACE-INHIBITOR [Concomitant]
     Indication: CORONARY ARTERY DISEASE
     Dosage: 25 MG, QD
     Dates: start: 20070201
  3. ESIDRIX [Concomitant]
     Indication: HYPERTENSION
     Dates: start: 20070201
  4. AMLODIPINE [Concomitant]
     Indication: DRUG USE FOR UNKNOWN INDICATION
     Dosage: 25 MG, QD

REACTIONS (1)
  - DRUG ERUPTION [None]
